FAERS Safety Report 9700185 (Version 1)
Quarter: 2013Q4

REPORT INFORMATION
  Report Type: Spontaneous
  Country: US (occurrence: US)
  Receive Date: 20131121
  Receipt Date: 20131121
  Transmission Date: 20140711
  Serious: Yes (Hospitalization)
  Sender: FDA-Public Use
  Company Number: US-ASTRAZENECA-2013SE83706

PATIENT
  Age: 49 Year
  Sex: Male
  Weight: 74.8 kg

DRUGS (9)
  1. SEROQUEL [Suspect]
     Indication: DETOXIFICATION
     Route: 042
     Dates: start: 20131018, end: 20131024
  2. VALIUM [Suspect]
     Indication: DETOXIFICATION
     Route: 048
     Dates: start: 20131018
  3. ATIVAN [Suspect]
     Indication: DETOXIFICATION
     Dosage: FOR AT LEAST TWO YEARS
     Route: 048
  4. ATIVAN [Suspect]
     Indication: DETOXIFICATION
     Dosage: 2 MG/ML VIAL AT 10 MG EVERY HOUR
     Route: 042
     Dates: start: 20131018, end: 20131024
  5. ATIVAN [Suspect]
     Indication: DETOXIFICATION
     Dosage: 6-7 MG, EVERY HOUR
     Route: 042
     Dates: start: 201310
  6. LIBRIUM [Suspect]
     Indication: DETOXIFICATION
     Route: 042
     Dates: start: 20131018
  7. ENALAPRIL [Concomitant]
     Dates: start: 2001
  8. AMBIEN [Concomitant]
  9. UNSPECIFIED ALLERGY MEDICATION [Concomitant]

REACTIONS (5)
  - Overdose [Unknown]
  - Asthenia [Unknown]
  - Ear pain [Unknown]
  - Hallucination, visual [Unknown]
  - Off label use [Unknown]
